FAERS Safety Report 6271746-8 (Version None)
Quarter: 2009Q3

REPORT INFORMATION
  Report Type: 
  Country: None (occurrence: None)
  Receive Date: 20090717
  Receipt Date: 20090706
  Transmission Date: 20100115
  Serious: Yes (Hospitalization)
  Sender: FDA-Public Use
  Company Number: BR-BAYER-200918619LA

PATIENT
  Age: 28 Year
  Sex: Female
  Weight: 40 kg

DRUGS (2)
  1. MIRANOVA [Suspect]
     Indication: CONTRACEPTION
     Route: 048
     Dates: start: 20090201, end: 20090301
  2. MIRANOVA [Suspect]
     Route: 048
     Dates: start: 20090701, end: 20090706

REACTIONS (2)
  - ABDOMINAL DISTENSION [None]
  - BENIGN MUSCLE NEOPLASM [None]
